FAERS Safety Report 17686288 (Version 1)
Quarter: 2020Q2

REPORT INFORMATION
  Report Type: Spontaneous
  Country: US (occurrence: US)
  Receive Date: 20200420
  Receipt Date: 20200420
  Transmission Date: 20200714
  Serious: No
  Sender: FDA-Public Use
  Company Number: US-TEVA-2020-US-1222441

PATIENT
  Age: 69 Year
  Sex: Male

DRUGS (8)
  1. CYCLOSPORIN [Interacting]
     Active Substance: CYCLOSPORINE
     Dosage: 250 MILLIGRAM DAILY;
     Route: 048
  2. MIDOSTAURIN [Interacting]
     Active Substance: MIDOSTAURIN
     Indication: ACUTE MYELOID LEUKAEMIA
     Dosage: 100 MILLIGRAM DAILY; STARTED ON DAY +45 TO BE RECEIVED FOR 1 YEAR.
     Route: 048
  3. LETERMOVIR [Concomitant]
     Active Substance: LETERMOVIR
     Route: 065
  4. CYCLOSPORIN [Suspect]
     Active Substance: CYCLOSPORINE
     Indication: PROPHYLAXIS AGAINST GRAFT VERSUS HOST DISEASE
     Dosage: STARTED ON DAY -3 AT AN UNKNOWN INITIAL DOSE WITH A GOAL TO ACHIEVE A TROUGH LEVEL OF 250-300 NG/ML.
     Route: 048
  5. CYCLOSPORIN [Interacting]
     Active Substance: CYCLOSPORINE
     Dosage: 350 MILLIGRAM DAILY; PRIOR TO INITIATION OF MIDOSTAURIN
     Route: 048
  6. FLUCONAZOLE. [Concomitant]
     Active Substance: FLUCONAZOLE
     Route: 065
  7. AMLODIPINE [Concomitant]
     Active Substance: AMLODIPINE BESYLATE
     Route: 065
  8. SULFAMETHOXAZOLE/TRIMETHOPRIM [Concomitant]
     Active Substance: SULFAMETHOXAZOLE\TRIMETHOPRIM
     Route: 065

REACTIONS (3)
  - Off label use [Unknown]
  - Drug interaction [Recovered/Resolved]
  - Immunosuppressant drug level increased [Recovered/Resolved]
